FAERS Safety Report 13568111 (Version 1)
Quarter: 2017Q2

REPORT INFORMATION
  Report Type: Spontaneous
  Country: US (occurrence: US)
  Receive Date: 20170522
  Receipt Date: 20170522
  Transmission Date: 20170830
  Serious: No
  Sender: FDA-Public Use
  Company Number: US-009507513-1705USA009188

PATIENT
  Sex: Female

DRUGS (2)
  1. XANAX [Suspect]
     Active Substance: ALPRAZOLAM
  2. BELSOMRA [Suspect]
     Active Substance: SUVOREXANT
     Route: 048

REACTIONS (2)
  - Chest pain [Unknown]
  - Abnormal behaviour [Unknown]
